FAERS Safety Report 5575016-2 (Version None)
Quarter: 2007Q4

REPORT INFORMATION
  Report Type: 
  Country: None (occurrence: None)
  Receive Date: 20071227
  Receipt Date: 20071212
  Transmission Date: 20080405
  Serious: Yes (Hospitalization)
  Sender: FDA-Public Use
  Company Number: US-BAYER-200716669NA

PATIENT
  Age: 28 Year
  Sex: Female
  Weight: 121 kg

DRUGS (10)
  1. BETASERON [Suspect]
     Indication: RELAPSING-REMITTING MULTIPLE SCLEROSIS
     Dosage: TOTAL DAILY DOSE: 8 MIU
     Route: 058
     Dates: start: 19990101, end: 20040101
  2. BETASERON [Suspect]
     Dosage: TOTAL DAILY DOSE: 8 MIU
     Route: 058
     Dates: start: 20070101
  3. NEURONTIN [Concomitant]
     Indication: MUSCLE SPASMS
  4. BACLOFEN [Concomitant]
  5. FLUOXETINE [Concomitant]
  6. DARVOCET [Concomitant]
  7. TYLENOL [Concomitant]
     Route: 048
  8. NEURONTIN [Concomitant]
     Route: 048
  9. LOVENOX [Concomitant]
  10. COUMADIN [Concomitant]
     Dosage: TOTAL DAILY DOSE: 7.5 MG

REACTIONS (10)
  - COUGH [None]
  - DEPRESSION [None]
  - DYSPNOEA [None]
  - HAEMOPTYSIS [None]
  - HYPOAESTHESIA [None]
  - MUSCLE SPASMS [None]
  - NEUROPATHY PERIPHERAL [None]
  - PAIN IN EXTREMITY [None]
  - PULMONARY THROMBOSIS [None]
  - THROMBOSIS [None]
